FAERS Safety Report 7134487-0 (Version None)
Quarter: 2010Q4

REPORT INFORMATION
  Report Type: 
  Country: None (occurrence: None)
  Receive Date: 20101203
  Receipt Date: 20101124
  Transmission Date: 20110411
  Serious: Yes (Other)
  Sender: FDA-Public Use
  Company Number: NL-JNJFOC-20101200687

PATIENT
  Sex: Female

DRUGS (5)
  1. DOXORUBICIN HYDROCHLORIDE [Suspect]
     Indication: OVARIAN CANCER
     Dosage: DAY 1
     Route: 042
  2. ATRASENTAN [Suspect]
     Indication: OVARIAN CANCER
     Route: 048
  3. DEXAMETHASONE [Suspect]
     Indication: PREMEDICATION
     Route: 065
  4. RANITIDINE [Suspect]
     Indication: PREMEDICATION
     Route: 065
  5. TAVEGIL [Suspect]
     Indication: PREMEDICATION
     Route: 065

REACTIONS (1)
  - HYPOALBUMINAEMIA [None]
